FAERS Safety Report 4762597-1 (Version None)
Quarter: 2005Q3

REPORT INFORMATION
  Report Type: 
  Country: None (occurrence: None)
  Receive Date: 20050907
  Receipt Date: 20050829
  Transmission Date: 20060218
  Serious: Yes (Other)
  Sender: FDA-Public Use
  Company Number: CA-GLAXOSMITHKLINE-A0572456A

PATIENT
  Age: 39 Year
  Sex: Female

DRUGS (5)
  1. COMBIVIR [Suspect]
     Indication: DRUG USE FOR UNKNOWN INDICATION
     Dosage: 2TAB PER DAY
     Route: 048
  2. EFAVIRENZ [Concomitant]
  3. PAXIL [Concomitant]
  4. SEROQUEL [Concomitant]
  5. VENTOLIN [Concomitant]

REACTIONS (14)
  - ANAEMIA MACROCYTIC [None]
  - ANGINA PECTORIS [None]
  - ASTHENIA [None]
  - BACK PAIN [None]
  - DYSPNOEA [None]
  - LEUKOPENIA [None]
  - NECK PAIN [None]
  - PAIN IN EXTREMITY [None]
  - PALLOR [None]
  - SHOULDER PAIN [None]
  - SOMNOLENCE [None]
  - SYNCOPE [None]
  - TINNITUS [None]
  - WEIGHT DECREASED [None]
